FAERS Safety Report 8986142 (Version 2)
Quarter: 2013Q1

REPORT INFORMATION
  Report Type: Spontaneous
  Country: GB (occurrence: None)
  Receive Date: 20121019
  Receipt Date: 20121114
  Transmission Date: 20140127
  Serious: Yes (Other)
  Sender: FDA-Public Use
  Company Number: 219050

PATIENT
  Age: 70 Year
  Sex: Male
  Weight: 81 kg

DRUGS (8)
  1. PICATO [Suspect]
     Indication: ACTINIC KERATOSIS
     Dosage: ON MIDDLE FOREHEAD
     Dates: start: 20121002, end: 20121004
  2. AMLODIPINE [Concomitant]
  3. RAMIPRIL [Concomitant]
  4. BENDROFLUMETHAZIDE [Concomitant]
  5. DOXAZOSIN [Concomitant]
  6. GLICLAZIDE [Concomitant]
  7. METFORMIN [Concomitant]
  8. SAXAGLIPTIN [Concomitant]

REACTIONS (3)
  - Corneal abrasion [None]
  - Periorbital oedema [None]
  - Lacrimation increased [None]
